FAERS Safety Report 12803280 (Version 1)
Quarter: 2016Q4

REPORT INFORMATION
  Report Type: Spontaneous
  Country: NL (occurrence: NL)
  Receive Date: 20161003
  Receipt Date: 20161003
  Transmission Date: 20170207
  Serious: Yes (Hospitalization)
  Sender: FDA-Public Use
  Company Number: PHHY2016NL132217

PATIENT
  Age: 19 Month
  Sex: Male
  Weight: 9 kg

DRUGS (1)
  1. SALBUTAMOL SANDOZ [Suspect]
     Active Substance: ALBUTEROL
     Indication: DYSPNOEA
     Dosage: 200 UG, TID, 3 KEER PER DAG 2 STUK(S)
     Route: 055
     Dates: start: 20160829

REACTIONS (4)
  - Product quality issue [Unknown]
  - Therapeutic response unexpected [Unknown]
  - Dyspnoea [Unknown]
  - Therapeutic response decreased [Unknown]

NARRATIVE: CASE EVENT DATE: 201609
